FAERS Safety Report 4374995-9 (Version None)
Quarter: 2004Q2

REPORT INFORMATION
  Report Type: 
  Country: None (occurrence: None)
  Receive Date: 20040604
  Receipt Date: 20040524
  Transmission Date: 20050107
  Serious: Yes (Hospitalization)
  Sender: FDA-Public Use
  Company Number: GBWYE782626MAY04

PATIENT
  Age: 65 Year
  Sex: Female

DRUGS (8)
  1. RAPAMUNE [Suspect]
     Indication: IMMUNOSUPPRESSANT DRUG LEVEL
     Dosage: 4 MG 1X PER 1 DAY ORAL
     Route: 048
     Dates: start: 20030629, end: 20040114
  2. RAPAMUNE [Suspect]
     Indication: IMMUNOSUPPRESSANT DRUG LEVEL
     Dosage: 4 MG 1X PER 1 DAY ORAL
     Route: 048
     Dates: start: 20040115
  3. ZENAPAX [Concomitant]
  4. MYCOPHENOLATE MOFETIL (MYCOPHENOLATE MOFETIL) [Concomitant]
  5. PREDNISOLONE [Concomitant]
  6. AMLODIPINE [Concomitant]
  7. DOXAZOSIN [Concomitant]
  8. SODIUM BICARBONATE IN PLASTIC CONTAINER [Concomitant]

REACTIONS (2)
  - PANCREATITIS ACUTE [None]
  - RESPIRATORY DISORDER [None]
